FAERS Safety Report 4625848-X (Version None)
Quarter: 2005Q1

REPORT INFORMATION
  Report Type: 
  Country: None (occurrence: None)
  Receive Date: 20050330
  Receipt Date: 20050317
  Transmission Date: 20050727
  Serious: Yes (Hospitalization)
  Sender: FDA-Public Use
  Company Number: 2005UW04324

PATIENT
  Sex: Male

DRUGS (1)
  1. CRESTOR [Suspect]
     Dosage: 10 MG DAILY PO
     Route: 048

REACTIONS (4)
  - CARDIAC ARREST [None]
  - FASCIITIS [None]
  - RENAL FAILURE [None]
  - RHABDOMYOLYSIS [None]
